FAERS Safety Report 13103614 (Version 2)
Quarter: 2017Q1

REPORT INFORMATION
  Report Type: Report from Study
  Country: US (occurrence: US)
  Receive Date: 20170111
  Receipt Date: 20170302
  Transmission Date: 20170428
  Serious: Yes (Hospitalization)
  Sender: FDA-Public Use
  Company Number: PHEH2017US000865

PATIENT
  Age: 36 Year
  Sex: Female

DRUGS (2)
  1. GILENYA [Suspect]
     Active Substance: FINGOLIMOD HYDROCHLORIDE
     Dosage: UNK UNK, QOD
     Route: 065
     Dates: end: 201609
  2. GILENYA [Suspect]
     Active Substance: FINGOLIMOD HYDROCHLORIDE
     Indication: MULTIPLE SCLEROSIS
     Dosage: 0.5 MG, QD
     Route: 048
     Dates: start: 2011

REACTIONS (5)
  - Immune reconstitution inflammatory syndrome [Recovering/Resolving]
  - Prescribed underdose [Unknown]
  - Multiple sclerosis relapse [Recovering/Resolving]
  - Aphasia [Recovering/Resolving]
  - Monoplegia [Recovering/Resolving]

NARRATIVE: CASE EVENT DATE: 201611
